FAERS Safety Report 8407004-2 (Version None)
Quarter: 2012Q2

REPORT INFORMATION
  Report Type: 
  Country: None (occurrence: None)
  Receive Date: 20120529
  Receipt Date: 20050708
  Transmission Date: 20120825
  Serious: Yes (Death, Other)
  Sender: FDA-Public Use
  Company Number: 02100-JPN-05-0328

PATIENT
  Age: 83 Year
  Sex: Male

DRUGS (7)
  1. PLETAL [Suspect]
     Indication: CEREBRAL INFARCTION
     Dosage: 100 MG, BID, ORAL
     Route: 048
     Dates: start: 20040928, end: 20050609
  2. SODIUM BICARBONATE IN PLASTIC CONTAINER [Concomitant]
  3. DIGOXIN [Concomitant]
  4. PROGOGUE (FAMOTIDINE) [Concomitant]
  5. RUEFRIEN (LEVOGLUTAMIDE, AZULENE) [Concomitant]
  6. PHENYTOIN [Concomitant]
  7. DYDRENE (NITROGLYCERIN) [Concomitant]

REACTIONS (5)
  - SUDDEN DEATH [None]
  - PRODUCTIVE COUGH [None]
  - ACUTE RESPIRATORY FAILURE [None]
  - DYSPHAGIA [None]
  - ASPIRATION [None]
